FAERS Safety Report 8484708-7 (Version None)
Quarter: 2012Q3

REPORT INFORMATION
  Report Type: 
  Country: None (occurrence: None)
  Receive Date: 20120703
  Receipt Date: 20120510
  Transmission Date: 20120928
  Serious: No
  Sender: FDA-Public Use
  Company Number: US-TEVA-337581USA

PATIENT
  Sex: Male

DRUGS (3)
  1. NUVIGIL [Suspect]
     Indication: FATIGUE
     Route: 048
  2. MODAFINIL [Suspect]
     Indication: FATIGUE
     Route: 048
  3. LEVOTHYROXINE SODIUM [Concomitant]
     Dosage: QAM
     Route: 048

REACTIONS (2)
  - DRUG INEFFECTIVE [None]
  - OFF LABEL USE [None]
